FAERS Safety Report 6190461-2 (Version None)
Quarter: 2009Q2

REPORT INFORMATION
  Report Type: 
  Country: None (occurrence: None)
  Receive Date: 20090514
  Receipt Date: 20090506
  Transmission Date: 20091009
  Serious: Yes (Other)
  Sender: FDA-Public Use
  Company Number: PHHY2009GB17805

PATIENT

DRUGS (1)
  1. NEORAL [Suspect]
     Indication: TRANSPLANT
     Dosage: 75MG IN THE MORNING AND 50MG IN THE EVENING

REACTIONS (1)
  - CORONARY ARTERY BYPASS [None]
